FAERS Safety Report 5378440-6 (Version None)
Quarter: 2007Q3

REPORT INFORMATION
  Report Type: 
  Country: None (occurrence: None)
  Receive Date: 20070702
  Receipt Date: 20070620
  Transmission Date: 20080115
  Serious: Yes (Hospitalization)
  Sender: FDA-Public Use
  Company Number: MEDI-0004304

PATIENT
  Age: 4 Month

DRUGS (5)
  1. SYNAGIS [Suspect]
     Indication: ANTIVIRAL PROPHYLAXIS
     Dosage: SEE IMAGE
     Route: 030
     Dates: start: 20051014, end: 20051014
  2. SYNAGIS [Suspect]
     Indication: ANTIVIRAL PROPHYLAXIS
     Dosage: SEE IMAGE
     Route: 030
     Dates: start: 20051106
  3. SYNAGIS [Suspect]
     Indication: ANTIVIRAL PROPHYLAXIS
     Dosage: SEE IMAGE
     Route: 030
     Dates: start: 20051208
  4. SYNAGIS [Suspect]
     Indication: ANTIVIRAL PROPHYLAXIS
     Dosage: SEE IMAGE
     Route: 030
     Dates: start: 20060103
  5. SYNAGIS [Suspect]
     Indication: ANTIVIRAL PROPHYLAXIS
     Dosage: SEE IMAGE
     Route: 030
     Dates: start: 20060131

REACTIONS (11)
  - BRONCHIAL OBSTRUCTION [None]
  - BRONCHIOLITIS [None]
  - BRONCHITIS [None]
  - CARDIOPULMONARY FAILURE [None]
  - CONVULSION [None]
  - CORONA VIRUS INFECTION [None]
  - HYPERTHERMIA [None]
  - LUNG DISORDER [None]
  - PYELONEPHRITIS ACUTE [None]
  - RHINOVIRUS INFECTION [None]
  - URINARY TRACT INFECTION [None]
